FAERS Safety Report 23787359 (Version 1)
Quarter: 2024Q2

REPORT INFORMATION
  Report Type: Spontaneous
  Country: US (occurrence: US)
  Receive Date: 20240426
  Receipt Date: 20240426
  Transmission Date: 20240716
  Serious: Yes (Hospitalization, Other)
  Sender: FDA-Public Use
  Company Number: US-GLAXOSMITHKLINE-US2024AMR051092

PATIENT
  Sex: Male

DRUGS (3)
  1. LAMICTAL [Suspect]
     Active Substance: LAMOTRIGINE
     Indication: Bipolar disorder
     Dosage: 25 MG, BID
     Route: 048
  2. LAMICTAL [Suspect]
     Active Substance: LAMOTRIGINE
     Dosage: 50 MG
  3. LAMICTAL [Suspect]
     Active Substance: LAMOTRIGINE
     Dosage: 100 MG
     Dates: end: 20220527

REACTIONS (7)
  - SJS-TEN overlap [Unknown]
  - Stevens-Johnson syndrome [Unknown]
  - Rash [Unknown]
  - Skin exfoliation [Unknown]
  - Rash pruritic [Unknown]
  - Pyrexia [Unknown]
  - Vision blurred [Unknown]
